FAERS Safety Report 21041361 (Version 1)
Quarter: 2022Q3

REPORT INFORMATION
  Report Type: Report from Study
  Country: US (occurrence: US)
  Receive Date: 20220705
  Receipt Date: 20220705
  Transmission Date: 20221026
  Serious: Yes (Other)
  Sender: FDA-Public Use
  Company Number: US-ABBVIE-22K-163-4453692-00

PATIENT
  Sex: Male

DRUGS (1)
  1. HUMIRA [Suspect]
     Active Substance: ADALIMUMAB
     Indication: Colitis ulcerative
     Dosage: CITRATE FREE PEN
     Route: 058

REACTIONS (4)
  - Anaemia [Unknown]
  - Blood pressure decreased [Unknown]
  - Colitis ulcerative [Not Recovered/Not Resolved]
  - Gastrointestinal infection [Not Recovered/Not Resolved]
